FAERS Safety Report 17169683 (Version 1)
Quarter: 2019Q4

REPORT INFORMATION
  Report Type: Spontaneous
  Country: US (occurrence: US)
  Receive Date: 20191218
  Receipt Date: 20191218
  Transmission Date: 20200122
  Serious: Yes (Other)
  Sender: FDA-Public Use
  Company Number: US-MYLANLABS-2019M1124113

PATIENT
  Sex: Female

DRUGS (2)
  1. LAMOTRIGINE. [Suspect]
     Active Substance: LAMOTRIGINE
     Indication: SEIZURE
  2. KEPPRA [Concomitant]
     Active Substance: LEVETIRACETAM
     Indication: ANXIETY

REACTIONS (2)
  - Seizure [Unknown]
  - Condition aggravated [Unknown]
